FAERS Safety Report 4423398-7 (Version None)
Quarter: 2004Q3

REPORT INFORMATION
  Report Type: 
  Country: None (occurrence: None)
  Receive Date: 20040806
  Receipt Date: 20040722
  Transmission Date: 20050211
  Serious: Yes (Hospitalization)
  Sender: FDA-Public Use
  Company Number: 04P-087-0268270-00

PATIENT
  Age: 71 Year
  Sex: Male

DRUGS (10)
  1. NORVIR [Suspect]
     Indication: HIV INFECTION
     Dosage: 400 MG, 1 IN 1 D, PER ORAL
     Route: 048
     Dates: start: 20030401, end: 20030822
  2. DIDANOSINE [Concomitant]
  3. LAMIVUDINE [Concomitant]
  4. SAQUINAVIR [Concomitant]
  5. AMPRENAVIR [Concomitant]
  6. TENOFOVIR [Concomitant]
  7. STAVUDINE [Concomitant]
  8. KALETRA [Concomitant]
  9. CLARITHROMYCIN [Concomitant]
  10. PENTAMIDINE [Concomitant]

REACTIONS (2)
  - ATYPICAL MYCOBACTERIAL INFECTION [None]
  - PNEUMOCYSTIS CARINII PNEUMONIA [None]
